FAERS Safety Report 23874721 (Version 2)
Quarter: 2024Q2

REPORT INFORMATION
  Report Type: Spontaneous
  Country: US (occurrence: US)
  Receive Date: 20240520
  Receipt Date: 20240527
  Transmission Date: 20240716
  Serious: Yes (Other)
  Sender: FDA-Public Use
  Company Number: US-SA-SAC20240516000110

PATIENT
  Age: 49 Year
  Sex: Female

DRUGS (1)
  1. DUPIXENT [Suspect]
     Active Substance: DUPILUMAB
     Indication: Nasal polyps
     Dosage: 300 MG, QOW
     Route: 058

REACTIONS (10)
  - Kidney infection [Unknown]
  - Injection site pain [Unknown]
  - Injection site bruising [Unknown]
  - Fall [Unknown]
  - Contusion [Unknown]
  - Bacterial infection [Not Recovered/Not Resolved]
  - Asthma exercise induced [Unknown]
  - Asthma [Unknown]
  - Injection site pain [Unknown]
  - Illness [Unknown]

NARRATIVE: CASE EVENT DATE: 20230101
